FAERS Safety Report 5583935-6 (Version None)
Quarter: 2008Q1

REPORT INFORMATION
  Report Type: 
  Country: None (occurrence: None)
  Receive Date: 20080103
  Receipt Date: 20080103
  Transmission Date: 20080703
  Serious: Yes (Hospitalization)
  Sender: FDA-Public Use
  Company Number: None

PATIENT
  Age: 90 Year
  Sex: Male

DRUGS (4)
  1. WARFARIN SODIUM [Suspect]
     Indication: DEEP VEIN THROMBOSIS
     Dosage: 0.5MG ALTERNATING WITH 1MG EVERY OTHER DAY PO
     Route: 048
  2. WARFARIN SODIUM [Suspect]
     Indication: PULMONARY EMBOLISM
     Dosage: 0.5MG ALTERNATING WITH 1MG EVERY OTHER DAY PO
     Route: 048
  3. ASPIRIN [Suspect]
     Indication: DEEP VEIN THROMBOSIS
     Dosage: 81MG DAILY PO
     Route: 048
  4. ASPIRIN [Suspect]
     Indication: PULMONARY EMBOLISM
     Dosage: 81MG DAILY PO
     Route: 048

REACTIONS (4)
  - ABDOMINAL PAIN [None]
  - CONTUSION [None]
  - MUSCLE HAEMORRHAGE [None]
  - SWELLING [None]
